FAERS Safety Report 6491611-0 (Version None)
Quarter: 2009Q4

REPORT INFORMATION
  Report Type: 
  Country: None (occurrence: None)
  Receive Date: 20091127
  Receipt Date: 20091111
  Transmission Date: 20100525
  Serious: Yes (Death)
  Sender: FDA-Public Use
  Company Number: 091116-0001173

PATIENT
  Age: 19 Year
  Sex: Female

DRUGS (1)
  1. ATRYN [Suspect]
     Indication: DRUG USE FOR UNKNOWN INDICATION
     Dosage: ;IV
     Route: 042

REACTIONS (1)
  - DEATH [None]
